FAERS Safety Report 20130282 (Version 1)
Quarter: 2021Q4

REPORT INFORMATION
  Report Type: Spontaneous
  Country: US (occurrence: US)
  Receive Date: 20211130
  Receipt Date: 20211130
  Transmission Date: 20220303
  Serious: No
  Sender: FDA-Public Use
  Company Number: US-PFIZER INC-202101148961

PATIENT

DRUGS (1)
  1. VYNDAMAX [Suspect]
     Active Substance: TAFAMIDIS
     Dosage: 61 MG, DAILY
     Dates: start: 20210825

REACTIONS (3)
  - Lip swelling [Unknown]
  - Periorbital swelling [Unknown]
  - Dizziness [Unknown]
